FAERS Safety Report 20140351 (Version 1)
Quarter: 2021Q4

REPORT INFORMATION
  Report Type: Spontaneous
  Country: US (occurrence: None)
  Receive Date: 20211202
  Receipt Date: 20211202
  Transmission Date: 20220303
  Serious: Yes (Other)
  Sender: FDA-Public Use
  Company Number: None

PATIENT
  Sex: Female

DRUGS (6)
  1. AMBRISENTAN [Suspect]
     Active Substance: AMBRISENTAN
     Dosage: FREQUENCY : DAILY;?
     Route: 048
  2. FLECAINIDE TAB [Concomitant]
  3. HYDRALAZINE TAB [Concomitant]
  4. NIACIN CAP [Concomitant]
  5. SILDENAFIL [Concomitant]
     Active Substance: SILDENAFIL
  6. SILDENAFIL CITRATE [Concomitant]
     Active Substance: SILDENAFIL CITRATE

REACTIONS (2)
  - Nasal congestion [None]
  - Breast cancer [None]
